FAERS Safety Report 6903692-8 (Version None)
Quarter: 2010Q3

REPORT INFORMATION
  Report Type: 
  Country: None (occurrence: None)
  Receive Date: 20100803
  Receipt Date: 20081114
  Transmission Date: 20110219
  Serious: No
  Sender: FDA-Public Use
  Company Number: US-PFIZER INC-2008097412

PATIENT
  Sex: Male
  Weight: 65.9 kg

DRUGS (3)
  1. LYRICA [Suspect]
     Indication: EPILEPSY
     Dates: start: 20080101
  2. LAMICTAL [Concomitant]
  3. KEPPRA [Concomitant]

REACTIONS (1)
  - WEIGHT INCREASED [None]
